FAERS Safety Report 17219651 (Version 2)
Quarter: 2020Q1

REPORT INFORMATION
  Report Type: Spontaneous
  Country: US (occurrence: US)
  Receive Date: 20191231
  Receipt Date: 20200105
  Transmission Date: 20200409
  Serious: No
  Sender: FDA-Public Use
  Company Number: US-TEVA-2019-US-1160931

PATIENT
  Sex: Male

DRUGS (3)
  1. TESTOSTERONE. [Suspect]
     Active Substance: TESTOSTERONE
     Indication: BLOOD TESTOSTERONE DECREASED
     Dosage: 25 MILLIGRAM DAILY; 2 PACKETS OF 25 MG PER DAY
     Route: 061
  2. TESTOSTERONE. [Suspect]
     Active Substance: TESTOSTERONE
     Indication: BONE DENSITY DECREASED
     Dosage: 25 MILLIGRAM DAILY; 1 PACKET OF 25 MG PER DAY
     Route: 061
  3. TESTOSTERONE. [Suspect]
     Active Substance: TESTOSTERONE
     Dosage: ALTERNATING DAYS TAKING ONE 25 MG PACKET 1 DAY THEN THE FOLLOWING DAY TWO 25 MG PACKETS
     Route: 061

REACTIONS (4)
  - Blood testosterone abnormal [Unknown]
  - Drug ineffective [Unknown]
  - Abnormal dreams [Unknown]
  - Disturbance in sexual arousal [Unknown]

NARRATIVE: CASE EVENT DATE: 201911
